FAERS Safety Report 10156767 (Version 1)
Quarter: 2014Q2

REPORT INFORMATION
  Report Type: Spontaneous
  Country: DE (occurrence: None)
  Receive Date: 20140505
  Receipt Date: 20140505
  Transmission Date: 20141212
  Serious: Yes (Congenital Anomaly, Other)
  Sender: FDA-Public Use
  Company Number: AUR-APL-2014-05196

PATIENT
  Age: 1 Day
  Sex: Male
  Weight: 3.76 kg

DRUGS (3)
  1. LAMOTRIGINE [Suspect]
     Indication: EPILEPSY
     Dosage: 300 MG (100 MG, 3 IN 1 D), TRANSPLACENTAL
     Route: 064
     Dates: start: 20130109, end: 20131010
  2. FOLSAURE [Concomitant]
  3. CEFUROXIME [Concomitant]

REACTIONS (2)
  - Maternal drugs affecting foetus [None]
  - Cataract congenital [None]
